FAERS Safety Report 5685170-X (Version None)
Quarter: 2008Q1

REPORT INFORMATION
  Report Type: 
  Country: None (occurrence: None)
  Receive Date: 20080328
  Receipt Date: 20080317
  Transmission Date: 20080703
  Serious: Yes (Death, Hospitalization)
  Sender: FDA-Public Use
  Company Number: US-PFIZER INC-2007067483

PATIENT
  Age: 64 Year
  Sex: Male
  Weight: 94 kg

DRUGS (1)
  1. SUTENT [Suspect]
     Indication: MESOTHELIOMA
     Route: 048
     Dates: start: 20070628, end: 20070726

REACTIONS (3)
  - DISEASE PROGRESSION [None]
  - MESOTHELIOMA [None]
  - PLEURAL EFFUSION [None]
